FAERS Safety Report 14418882 (Version 1)
Quarter: 2018Q1

REPORT INFORMATION
  Report Type: Spontaneous
  Country: US (occurrence: US)
  Receive Date: 20180122
  Receipt Date: 20180122
  Transmission Date: 20180509
  Serious: Yes (Other)
  Sender: FDA-Public Use
  Company Number: US-TEVA-774883USA

PATIENT
  Sex: Female

DRUGS (1)
  1. TRAZODONE [Suspect]
     Active Substance: TRAZODONE HYDROCHLORIDE
     Indication: SLEEP DISORDER
     Dosage: 50 MILLIGRAM DAILY;
     Dates: start: 201612, end: 20170525

REACTIONS (10)
  - Lacrimation increased [Unknown]
  - Abscess of eyelid [Unknown]
  - Glaucoma [Unknown]
  - Ocular hyperaemia [Recovering/Resolving]
  - Eye swelling [Recovering/Resolving]
  - Meibomian gland dysfunction [Unknown]
  - Eye pruritus [Unknown]
  - Eye pain [Unknown]
  - Blepharochalasis [Unknown]
  - Off label use [Unknown]

NARRATIVE: CASE EVENT DATE: 201612
